FAERS Safety Report 6803023-8 (Version None)
Quarter: 2010Q2

REPORT INFORMATION
  Report Type: 
  Country: None (occurrence: None)
  Receive Date: 20100628
  Receipt Date: 20100614
  Transmission Date: 20101027
  Serious: Yes (Other)
  Sender: FDA-Public Use
  Company Number: US-PFIZER INC-2010072478

PATIENT
  Sex: Female
  Weight: 68.03 kg

DRUGS (5)
  1. LYRICA [Suspect]
     Indication: FIBROMYALGIA
     Dosage: 100 MG, 4X/DAY
     Route: 048
     Dates: end: 20100617
  2. PERCOCET [Suspect]
     Indication: PAIN
     Dosage: UNK
     Route: 048
  3. VICODIN [Suspect]
     Indication: PAIN
     Dosage: UNK
     Route: 048
  4. VALIUM [Suspect]
     Indication: ARRHYTHMIA
     Dosage: 10 MG, 4X/DAY
     Route: 048
  5. VALIUM [Suspect]
     Indication: ANXIETY

REACTIONS (29)
  - ABDOMINAL DISCOMFORT [None]
  - AGGRESSION [None]
  - AGITATION [None]
  - ANKLE FRACTURE [None]
  - ASTHENIA [None]
  - BELLIGERENCE [None]
  - BLINDNESS [None]
  - CONFUSIONAL STATE [None]
  - DECREASED APPETITE [None]
  - DEPRESSION [None]
  - DIZZINESS [None]
  - DRUG INEFFECTIVE [None]
  - FALL [None]
  - FEELING DRUNK [None]
  - HYPOVENTILATION [None]
  - IMPAIRED DRIVING ABILITY [None]
  - IRRITABILITY [None]
  - MUSCLE SPASMS [None]
  - MUSCULAR WEAKNESS [None]
  - OEDEMA PERIPHERAL [None]
  - PSYCHOTIC DISORDER [None]
  - SOMNOLENCE [None]
  - SUICIDAL IDEATION [None]
  - TREMOR [None]
  - URINE OUTPUT DECREASED [None]
  - VISION BLURRED [None]
  - VISUAL ACUITY REDUCED [None]
  - VOMITING [None]
  - WEIGHT INCREASED [None]
